FAERS Safety Report 6706655-0 (Version None)
Quarter: 2010Q2

REPORT INFORMATION
  Report Type: 
  Country: None (occurrence: None)
  Receive Date: 20100503
  Receipt Date: 20100427
  Transmission Date: 20101027
  Serious: Yes (Hospitalization)
  Sender: FDA-Public Use
  Company Number: JP-EISAI INC.-E2020-06533-SPO-JP

PATIENT
  Age: 78 Year
  Sex: Female

DRUGS (3)
  1. ARICEPT [Suspect]
     Route: 048
     Dates: end: 20100421
  2. SERENACE [Suspect]
     Indication: DRUG USE FOR UNKNOWN INDICATION
     Dosage: UNKNOWN
     Route: 048
     Dates: end: 20100421
  3. PL (SALICYLAMIDE/ACETAMINOPHEN,ANHYDROUS/CAFFEINE/PROMETHEZINE METHYLE [Concomitant]
     Dates: end: 20100421

REACTIONS (1)
  - PLEUROTHOTONUS [None]
